FAERS Safety Report 15110250 (Version 1)
Quarter: 2018Q3

REPORT INFORMATION
  Report Type: Spontaneous
  Country: CZ (occurrence: CZ)
  Receive Date: 20180705
  Receipt Date: 20180705
  Transmission Date: 20181010
  Serious: Yes (Death, Life-Threatening, Hospitalization, Other)
  Sender: FDA-Public Use
  Company Number: CZ-PFIZER INC-2018269433

PATIENT
  Age: 41 Year
  Sex: Female
  Weight: 58 kg

DRUGS (10)
  1. MIDOSTAURIN [Suspect]
     Active Substance: MIDOSTAURIN
     Indication: ACUTE MYELOID LEUKAEMIA
     Dosage: NO TREATMENT
     Route: 065
  2. ZYVOXID [Concomitant]
     Active Substance: LINEZOLID
     Dosage: UNK
     Route: 065
  3. DAUNORUBICIN [Suspect]
     Active Substance: DAUNORUBICIN
     Dosage: 60 MG/M2, DAYS 1?3
     Route: 042
     Dates: start: 20090403, end: 20090406
  4. CYTARABINE. [Suspect]
     Active Substance: CYTARABINE
     Indication: ACUTE MYELOID LEUKAEMIA
     Dosage: 200 MG/M2, DAY 1?7
     Route: 042
     Dates: start: 20090331, end: 20090406
  5. MERONEM [Suspect]
     Active Substance: MEROPENEM
     Dosage: UNK
  6. DAUNORUBICIN [Suspect]
     Active Substance: DAUNORUBICIN
     Indication: ACUTE MYELOID LEUKAEMIA
     Dosage: 60 MG/M2, DAYS 1?3
     Route: 042
     Dates: start: 20090331, end: 20090402
  7. PLACEBO [Suspect]
     Active Substance: UNSPECIFIED INGREDIENT
     Indication: ACUTE MYELOID LEUKAEMIA
     Dosage: NO TREATMENT
     Route: 065
  8. CANCIDAS [Concomitant]
     Active Substance: CASPOFUNGIN ACETATE
     Dosage: UNK
     Route: 065
  9. VANCOCIN [Concomitant]
     Active Substance: VANCOMYCIN HYDROCHLORIDE
     Dosage: UNK
     Route: 065
  10. NORADRENALIN /00127501/ [Concomitant]
     Active Substance: NOREPINEPHRINE\NOREPINEPHRINE BITARTRATE
     Dosage: UNK
     Route: 065

REACTIONS (8)
  - Lactic acidosis [Fatal]
  - Febrile neutropenia [Not Recovered/Not Resolved]
  - Acute respiratory distress syndrome [Unknown]
  - Hepatic failure [Fatal]
  - Ileus [Not Recovered/Not Resolved]
  - Systemic inflammatory response syndrome [Fatal]
  - Hyperbilirubinaemia [Fatal]
  - Multiple organ dysfunction syndrome [Fatal]

NARRATIVE: CASE EVENT DATE: 20090402
